FAERS Safety Report 7138407-4 (Version None)
Quarter: 2010Q4

REPORT INFORMATION
  Report Type: 
  Country: None (occurrence: None)
  Receive Date: 20101206
  Receipt Date: 20101130
  Transmission Date: 20110411
  Serious: Yes (Death, Hospitalization)
  Sender: FDA-Public Use
  Company Number: US-CELGENEUS-163-21880-10081187

PATIENT
  Sex: Male

DRUGS (2)
  1. REVLIMID [Suspect]
     Indication: MULTIPLE MYELOMA
     Route: 048
     Dates: start: 20070101
  2. REVLIMID [Suspect]
     Route: 048
     Dates: start: 20070701, end: 20100101

REACTIONS (4)
  - LIVER DISORDER [None]
  - MYOCARDIAL INFARCTION [None]
  - PNEUMONIA [None]
  - RENAL DISORDER [None]
